FAERS Safety Report 13780136 (Version 1)
Quarter: 2017Q3

REPORT INFORMATION
  Report Type: Spontaneous
  Country: US (occurrence: US)
  Receive Date: 20170724
  Receipt Date: 20170724
  Transmission Date: 20171127
  Serious: No
  Sender: FDA-Public Use
  Company Number: US-BEH-2017082189

PATIENT
  Age: 73 Year
  Sex: Female
  Weight: 60.77 kg

DRUGS (20)
  1. SYNTHROID [Concomitant]
     Active Substance: LEVOTHYROXINE SODIUM
  2. HIZENTRA [Suspect]
     Active Substance: HUMAN IMMUNOGLOBULIN G
     Indication: DIFFUSE ALOPECIA
  3. IRON [Concomitant]
     Active Substance: IRON
  4. MUPIROCIN. [Concomitant]
     Active Substance: MUPIROCIN
  5. PANTOPRAZOLE [Concomitant]
     Active Substance: PANTOPRAZOLE
  6. MAGNESIUM [Concomitant]
     Active Substance: MAGNESIUM
  7. GABAPENTIN. [Concomitant]
     Active Substance: GABAPENTIN
  8. CLARITIN [Concomitant]
     Active Substance: LORATADINE
  9. HIZENTRA [Suspect]
     Active Substance: HUMAN IMMUNOGLOBULIN G
     Indication: IMMUNODEFICIENCY
     Dosage: 8 G, UNK
     Route: 058
     Dates: start: 20140501
  10. GLUCOPHAGE [Concomitant]
     Active Substance: METFORMIN HYDROCHLORIDE
  11. OXYCONTIN [Concomitant]
     Active Substance: OXYCODONE HYDROCHLORIDE
  12. FLUTICASONE. [Concomitant]
     Active Substance: FLUTICASONE
  13. VITAMIN D3 [Concomitant]
     Active Substance: CHOLECALCIFEROL
  14. VYTORIN [Concomitant]
     Active Substance: EZETIMIBE\SIMVASTATIN
  15. METOPROLOL. [Concomitant]
     Active Substance: METOPROLOL
  16. SINGULAIR [Concomitant]
     Active Substance: MONTELUKAST SODIUM
  17. ISOSORBIDE MONONITE [Concomitant]
  18. NITROGLYCERIN. [Concomitant]
     Active Substance: NITROGLYCERIN
  19. AMOXICILLIN AND CLAVULA. POTASSIUM /02043401/ [Concomitant]
     Active Substance: AMOXICILLIN\CLAVULANATE POTASSIUM
  20. RANEXA [Concomitant]
     Active Substance: RANOLAZINE

REACTIONS (1)
  - Anaemia [Unknown]

NARRATIVE: CASE EVENT DATE: 20170702
